FAERS Safety Report 9254275 (Version 1)
Quarter: 2013Q1

REPORT INFORMATION
  Report Type: Spontaneous
  Country: US (occurrence: None)
  Receive Date: 20121211
  Receipt Date: 20121211
  Transmission Date: 20140127
  Serious: Yes (Hospitalization)
  Sender: FDA-Public Use
  Company Number: 1209USA00361

PATIENT
  Sex: Male

DRUGS (6)
  1. ISENTRESS [Suspect]
     Route: 064
  2. RETROVIR [Suspect]
     Route: 042
  3. INTELENCE [Suspect]
  4. PREZISTA [Suspect]
     Route: 064
  5. NORVIR (RITONAVIR) [Suspect]
     Route: 064
  6. FUZEON [Suspect]
     Route: 064

REACTIONS (2)
  - Thrombocytopenia [None]
  - Exposure during pregnancy [None]
